FAERS Safety Report 10559987 (Version 1)
Quarter: 2014Q4

REPORT INFORMATION
  Report Type: Spontaneous
  Country: US (occurrence: US)
  Receive Date: 20141103
  Receipt Date: 20141103
  Transmission Date: 20150529
  Serious: Yes (Hospitalization)
  Sender: FDA-Public Use
  Company Number: PHEH2014US021333

PATIENT
  Sex: Male

DRUGS (1)
  1. GILENYA [Suspect]
     Active Substance: FINGOLIMOD HYDROCHLORIDE
     Indication: MULTIPLE SCLEROSIS
     Dosage: 0.5 MG, QD
     Route: 048
     Dates: start: 201404, end: 20141021

REACTIONS (11)
  - Hyperventilation [Unknown]
  - Bronchitis [Unknown]
  - Anxiety [Unknown]
  - Confusional state [Unknown]
  - Upper respiratory tract infection [Unknown]
  - Mental status changes [Unknown]
  - Dehydration [Unknown]
  - Feeling abnormal [Unknown]
  - Hyperhidrosis [Unknown]
  - Asthenia [Unknown]
  - Viral infection [Unknown]
